FAERS Safety Report 8232497 (Version 4)
Quarter: 2012Q4

REPORT INFORMATION
  Report Type: 
  Country: US (occurrence: US)
  Receive Date: 20111107
  Receipt Date: 20121019
  Transmission Date: 20130627
  Serious: Yes (Hospitalization, Other)
  Sender: FDA-Public Use
  Company Number: US-AMGEN-USASP2011055958

PATIENT
  Age: 20 Year
  Sex: Female
  Weight: 74.38 kg

DRUGS (2)
  1. NEUPOGEN [Suspect]
     Indication: INFANTILE GENETIC AGRANULOCYTOSIS
     Dosage: 300 mug, bid
     Route: 058
     Dates: start: 19910615
  2. NEUPOGEN [Suspect]
     Dosage: 300 mug, bid
     Route: 058
     Dates: start: 20111027

REACTIONS (6)
  - Neutropenia [Recovered/Resolved]
  - Caesarean section [Recovered/Resolved]
  - Exposure during pregnancy [Unknown]
  - Skin infection [Not Recovered/Not Resolved]
  - Furuncle [Not Recovered/Not Resolved]
  - Infection [Unknown]
